FAERS Safety Report 5611933-2 (Version None)
Quarter: 2008Q1

REPORT INFORMATION
  Report Type: 
  Country: None (occurrence: None)
  Receive Date: 20080130
  Receipt Date: 20080130
  Transmission Date: 20080703
  Serious: No
  Sender: FDA-Public Use
  Company Number: None

PATIENT
  Age: 39 Year
  Sex: Female

DRUGS (1)
  1. XYZAL [Suspect]
     Indication: URTICARIA
     Dosage: 5MG DAILY PO
     Route: 048
     Dates: start: 20071201, end: 20080101

REACTIONS (4)
  - AGGRESSION [None]
  - MOOD SWINGS [None]
  - PRURITUS [None]
  - URTICARIA [None]
